FAERS Safety Report 7907279-X (Version None)
Quarter: 2011Q4

REPORT INFORMATION
  Report Type: 
  Country: None (occurrence: None)
  Receive Date: 20111110
  Receipt Date: 20110224
  Transmission Date: 20120403
  Serious: Yes (Hospitalization)
  Sender: FDA-Public Use
  Company Number: US-GLAXOSMITHKLINE-A0915656A

PATIENT
  Age: 73 Year
  Sex: Male

DRUGS (2)
  1. AVANDIA [Suspect]
     Indication: DIABETES MELLITUS
     Dosage: 4MG PER DAY
     Route: 048
     Dates: start: 20020401, end: 20070101
  2. AVANDAMET [Suspect]
     Indication: DIABETES MELLITUS
     Route: 048
     Dates: start: 20050101, end: 20060101

REACTIONS (5)
  - ANGINA UNSTABLE [None]
  - STENT PLACEMENT [None]
  - CORONARY ARTERY DISEASE [None]
  - CARDIAC FAILURE CONGESTIVE [None]
  - HYPERLIPIDAEMIA [None]
